FAERS Safety Report 4712046-4 (Version None)
Quarter: 2005Q3

REPORT INFORMATION
  Report Type: 
  Country: None (occurrence: None)
  Receive Date: 20050712
  Receipt Date: 20050629
  Transmission Date: 20060218
  Serious: Yes (Hospitalization)
  Sender: FDA-Public Use
  Company Number: SE-JNJFOC-20041202500

PATIENT
  Age: 60 Year
  Sex: Female

DRUGS (2)
  1. REMINYL [Suspect]
     Route: 049
     Dates: start: 20030501, end: 20041022
  2. EBIXA [Suspect]
     Route: 049
     Dates: start: 20040903, end: 20041118

REACTIONS (5)
  - ANAEMIA [None]
  - ARTHRITIS [None]
  - NAUSEA [None]
  - SYNCOPE [None]
  - VOMITING [None]
